FAERS Safety Report 21192213 (Version 19)
Quarter: 2023Q1

REPORT INFORMATION
  Report Type: Spontaneous
  Country: US (occurrence: US)
  Receive Date: 20220809
  Receipt Date: 20230317
  Transmission Date: 20230417
  Serious: Yes (Other)
  Sender: FDA-Public Use
  Company Number: US-PFIZER INC-PV202200038719

PATIENT
  Age: 74 Year
  Sex: Female

DRUGS (5)
  1. IBRANCE [Suspect]
     Active Substance: PALBOCICLIB
     Indication: Breast cancer metastatic
     Dosage: 125 MG
     Dates: start: 20220819, end: 20220912
  2. IBRANCE [Suspect]
     Active Substance: PALBOCICLIB
     Dosage: 100 MG
     Dates: start: 20221028
  3. CYANOCOBALAMIN [Concomitant]
     Active Substance: CYANOCOBALAMIN
     Dosage: UNK
  4. ZINC [Concomitant]
     Active Substance: ZINC
     Dosage: UNK
  5. VITAMIN C [Concomitant]
     Active Substance: ASCORBIC ACID
     Dosage: UNK

REACTIONS (29)
  - Oesophageal dilatation [Unknown]
  - White blood cell count decreased [Recovered/Resolved]
  - Diverticulitis [Unknown]
  - Neoplasm progression [Unknown]
  - Dysphagia [Unknown]
  - Gastrooesophageal reflux disease [Unknown]
  - Epigastric discomfort [Unknown]
  - Hypoacusis [Unknown]
  - Back disorder [Unknown]
  - Pharyngeal disorder [Unknown]
  - Eructation [Unknown]
  - Diarrhoea [Unknown]
  - Fatigue [Unknown]
  - Decreased appetite [Unknown]
  - Full blood count decreased [Unknown]
  - Cystitis [Unknown]
  - Dyspepsia [Unknown]
  - Dysgeusia [Unknown]
  - Throat irritation [Unknown]
  - Tooth injury [Unknown]
  - Gastric disorder [Unknown]
  - Therapeutic response unexpected [Unknown]
  - Bladder prolapse [Unknown]
  - Tooth extraction [Unknown]
  - Tooth fracture [Unknown]
  - Full blood count abnormal [Unknown]
  - Headache [Unknown]
  - Back pain [Unknown]
  - Pelvic organ prolapse [Unknown]

NARRATIVE: CASE EVENT DATE: 20220101
